FAERS Safety Report 9733575 (Version 1)
Quarter: 2013Q4

REPORT INFORMATION
  Report Type: Spontaneous
  Country: CA (occurrence: CA)
  Receive Date: 20131205
  Receipt Date: 20131205
  Transmission Date: 20140711
  Serious: Yes (Other)
  Sender: FDA-Public Use
  Company Number: CA-GLAXOSMITHKLINE-A1050518A

PATIENT
  Age: 56 Year
  Sex: Male

DRUGS (1)
  1. AVAMYS [Suspect]
     Indication: SINUSITIS
     Dosage: 2SPR PER DAY
     Route: 065
     Dates: start: 20130918, end: 20130920

REACTIONS (5)
  - Influenza like illness [Recovered/Resolved]
  - Back pain [Recovered/Resolved]
  - Cheilitis [Recovered/Resolved]
  - Fatigue [Recovered/Resolved]
  - Pain [Recovered/Resolved]
